FAERS Safety Report 13529422 (Version 1)
Quarter: 2017Q2

REPORT INFORMATION
  Report Type: Spontaneous
  Country: US (occurrence: US)
  Receive Date: 20170509
  Receipt Date: 20170509
  Transmission Date: 20170830
  Serious: No
  Sender: FDA-Public Use
  Company Number: US-ROCHE-GNE295851

PATIENT
  Age: 71 Year
  Sex: Male
  Weight: 59.16 kg

DRUGS (2)
  1. XOLAIR [Suspect]
     Active Substance: OMALIZUMAB
     Indication: ASTHMA
     Dosage: 375 MG, Q2W
     Route: 058
     Dates: start: 200412
  2. CONCOMITANT UNSPECIFIED DRUGS [Concomitant]
     Indication: BLOOD CHOLESTEROL

REACTIONS (1)
  - Arthralgia [Not Recovered/Not Resolved]
